FAERS Safety Report 19839713 (Version 1)
Quarter: 2021Q3

REPORT INFORMATION
  Report Type: Spontaneous
  Country: US (occurrence: US)
  Receive Date: 20210916
  Receipt Date: 20210916
  Transmission Date: 20211014
  Serious: No
  Sender: FDA-Public Use
  Company Number: US-BSC-202000191

PATIENT
  Age: 60 Year
  Sex: Female
  Weight: 79 kg

DRUGS (4)
  1. ELIQUIS [Concomitant]
     Active Substance: APIXABAN
     Route: 048
     Dates: start: 20200911, end: 20200923
  2. VARITHENA [Suspect]
     Active Substance: POLIDOCANOL
     Dosage: RIGHT LEG
     Dates: start: 20200615, end: 20200615
  3. VARITHENA [Suspect]
     Active Substance: POLIDOCANOL
     Dosage: LEFT LEG
     Dates: start: 20200916, end: 20200916
  4. VARITHENA [Suspect]
     Active Substance: POLIDOCANOL
     Dosage: RIGHT LEG SECOND SESSION
     Dates: start: 20200923, end: 20200923

REACTIONS (3)
  - Pain of skin [Recovered/Resolved]
  - Rash [Recovered/Resolved]
  - Injection site pain [Recovered/Resolved]

NARRATIVE: CASE EVENT DATE: 20200918
